FAERS Safety Report 6644274-5 (Version None)
Quarter: 2010Q1

REPORT INFORMATION
  Report Type: 
  Country: None (occurrence: None)
  Receive Date: 20100304
  Receipt Date: 20090528
  Transmission Date: 20100710
  Serious: Yes (Other)
  Sender: FDA-Public Use
  Company Number: US-002958

PATIENT
  Age: 68 Year
  Sex: Female
  Weight: 77 kg

DRUGS (3)
  1. ISOVUE-300 [Suspect]
     Indication: LYMPHOMA
     Dosage: 110ML ONCE INTRAVENOUS
     Route: 042
     Dates: start: 20090518, end: 20090518
  2. ISOVUE-300 [Suspect]
     Indication: POSITRON EMISSION TOMOGRAM
     Dosage: 110ML ONCE INTRAVENOUS
     Route: 042
     Dates: start: 20090518, end: 20090518
  3. EPIPEN [Concomitant]

REACTIONS (1)
  - ANAPHYLACTOID REACTION [None]
